FAERS Safety Report 14958392 (Version 1)
Quarter: 2018Q2

REPORT INFORMATION
  Report Type: Spontaneous
  Country: JP (occurrence: JP)
  Receive Date: 20180531
  Receipt Date: 20180531
  Transmission Date: 20180711
  Serious: Yes (Other)
  Sender: FDA-Public Use
  Company Number: JP-BAYER-2018-101802

PATIENT
  Age: 33 Year
  Sex: Male

DRUGS (1)
  1. STIVARGA [Suspect]
     Active Substance: REGORAFENIB
     Indication: HEPATOCELLULAR CARCINOMA
     Dosage: 160MG DAILY, 3W ON 1W OFF
     Route: 048
     Dates: start: 20170705, end: 20180330

REACTIONS (1)
  - Hepatocellular carcinoma [Unknown]
